FAERS Safety Report 7109929-7 (Version None)
Quarter: 2010Q4

REPORT INFORMATION
  Report Type: 
  Country: None (occurrence: None)
  Receive Date: 20101116
  Receipt Date: 20101116
  Transmission Date: 20110411
  Serious: Yes (Other)
  Sender: FDA-Public Use
  Company Number: None

PATIENT
  Age: 33 Year
  Sex: Female
  Weight: 70.7611 kg

DRUGS (1)
  1. BUDEPRION XL 150MG TEVA [Suspect]
     Indication: DEPRESSION
     Dosage: 2 TABLETS ONCE DAILY PO
     Route: 048

REACTIONS (1)
  - NAUSEA [None]
